FAERS Safety Report 15061417 (Version 1)
Quarter: 2018Q2

REPORT INFORMATION
  Report Type: Spontaneous
  Country: US (occurrence: US)
  Receive Date: 20180625
  Receipt Date: 20180625
  Transmission Date: 20180711
  Serious: No
  Sender: FDA-Public Use
  Company Number: US-ROCHE-1973168

PATIENT
  Age: 49 Year
  Sex: Female

DRUGS (2)
  1. DULOXETINE. [Concomitant]
     Active Substance: DULOXETINE
     Route: 065
  2. XELODA [Suspect]
     Active Substance: CAPECITABINE
     Indication: COLON CANCER
     Dosage: 3 TABLETS BY MOUTH TWICE A DAY FOR 10 DAYS
     Route: 048
     Dates: start: 20170801

REACTIONS (2)
  - Abdominal pain upper [Not Recovered/Not Resolved]
  - Paraesthesia [Not Recovered/Not Resolved]

NARRATIVE: CASE EVENT DATE: 20170802
